FAERS Safety Report 5164966-7 (Version None)
Quarter: 2006Q4

REPORT INFORMATION
  Report Type: 
  Country: None (occurrence: None)
  Receive Date: 20061124
  Receipt Date: 20061110
  Transmission Date: 20070319
  Serious: Yes (Other)
  Sender: FDA-Public Use
  Company Number: 2006141973

PATIENT
  Age: 46 Year
  Sex: Male

DRUGS (3)
  1. DILANTIN [Suspect]
     Dosage: 800 MG (100 MG), ORAL
     Route: 048
     Dates: start: 19760101
  2. VITAMIN C                               (VITAMIN C) [Concomitant]
  3. FIORINAL [Concomitant]

REACTIONS (5)
  - DIZZINESS [None]
  - DYSSTASIA [None]
  - FEELING DRUNK [None]
  - GAIT DISTURBANCE [None]
  - VISION BLURRED [None]
